FAERS Safety Report 23550839 (Version 2)
Quarter: 2024Q1

REPORT INFORMATION
  Report Type: Report from Study
  Country: SA (occurrence: SA)
  Receive Date: 20240221
  Receipt Date: 20240312
  Transmission Date: 20240409
  Serious: Yes (Death, Hospitalization, Other)
  Sender: FDA-Public Use
  Company Number: SA-ABBVIE-5648256

PATIENT
  Age: 70 Year
  Sex: Male

DRUGS (2)
  1. CARBIDOPA\LEVODOPA [Suspect]
     Active Substance: CARBIDOPA\LEVODOPA
     Indication: Parkinson^s disease
     Dosage: M D: 0 C D: 4.8 E D: 2
     Route: 050
     Dates: start: 20200220, end: 20240217
  2. CARBIDOPA\LEVODOPA [Suspect]
     Active Substance: CARBIDOPA\LEVODOPA

REACTIONS (5)
  - Death [Fatal]
  - Parkinson^s disease [Unknown]
  - Dysphagia [Unknown]
  - Blood sodium decreased [Unknown]
  - Organ failure [Unknown]

NARRATIVE: CASE EVENT DATE: 20240217
